FAERS Safety Report 25791812 (Version 1)
Quarter: 2025Q3

REPORT INFORMATION
  Report Type: Spontaneous
  Country: EU (occurrence: EU)
  Receive Date: 20250911
  Receipt Date: 20250911
  Transmission Date: 20251020
  Serious: Yes (Other)
  Sender: CHEPLAPHARM
  Company Number: None

PATIENT
  Age: 20 Year
  Sex: Female

DRUGS (4)
  1. QUETIAPINE [Suspect]
     Active Substance: QUETIAPINE
     Indication: Psychotic disorder
     Route: 048
     Dates: start: 20240924
  2. EN [Suspect]
     Active Substance: DELORAZEPAM
     Indication: Anxiety
     Dosage: 2MG 1/2 TABLET AT 8AM - 1/2 TABLET AT 2PM - 1 TABLET AT 8PM?DAILY DOSE: 4 MILLIGRAM
     Route: 048
     Dates: start: 20240924
  3. TALOFEN [Suspect]
     Active Substance: PROMAZINE HYDROCHLORIDE
     Indication: Mental disorder
     Route: 048
     Dates: start: 20240924
  4. OXCARBAZEPINE [Concomitant]
     Active Substance: OXCARBAZEPINE

REACTIONS (2)
  - Toxic skin eruption [Recovered/Resolved]
  - Papule [Recovered/Resolved]

NARRATIVE: CASE EVENT DATE: 20240924
